FAERS Safety Report 8058810-8 (Version None)
Quarter: 2012Q1

REPORT INFORMATION
  Report Type: 
  Country: None (occurrence: None)
  Receive Date: 20120120
  Receipt Date: 20111102
  Transmission Date: 20120608
  Serious: No
  Sender: FDA-Public Use
  Company Number: US-BRISTOL-MYERS SQUIBB COMPANY-15941644

PATIENT
  Age: 63 Year
  Sex: Female
  Weight: 75 kg

DRUGS (13)
  1. IMODIUM [Concomitant]
  2. PRISTIQ [Concomitant]
  3. CLONAZEPAM [Concomitant]
     Dosage: 1DF: 1/2-1 PER DAY UP TO 2
  4. FENTANYL-100 [Concomitant]
     Dosage: PATCHES
  5. LISINOPRIL [Concomitant]
  6. AMBIEN [Concomitant]
     Indication: INSOMNIA
  7. DILAUDID [Concomitant]
     Dosage: 1DF:30 TABS 2MG
  8. YERVOY [Suspect]
     Indication: MALIGNANT MELANOMA
     Dosage: EXP DATE:AUG2013 THERAPY DATES:30UN11,1AUG11 DOSE:235MG(47ML) ADMIN OVER:30-40MIN
     Dates: start: 20110610
  9. AMBIEN [Concomitant]
     Indication: PANIC REACTION
  10. OXYCODONE HCL [Concomitant]
     Indication: PAIN
  11. NEXIUM [Concomitant]
  12. FENTANYL-100 [Concomitant]
  13. BENADRYL [Concomitant]

REACTIONS (18)
  - MEDICATION ERROR [None]
  - PANIC DISORDER [None]
  - PRURITUS [None]
  - ABDOMINAL PAIN [None]
  - VOMITING [None]
  - BLISTER [None]
  - NASOPHARYNGITIS [None]
  - PYREXIA [None]
  - SKIN DISORDER [None]
  - RENAL IMPAIRMENT [None]
  - ARTHRALGIA [None]
  - LIVER DISORDER [None]
  - LIVER FUNCTION TEST ABNORMAL [None]
  - GASTROINTESTINAL DISORDER [None]
  - CHILLS [None]
  - ERYTHEMA [None]
  - RASH [None]
  - OEDEMA PERIPHERAL [None]
